FAERS Safety Report 6665811-0 (Version None)
Quarter: 2010Q2

REPORT INFORMATION
  Report Type: 
  Country: None (occurrence: None)
  Receive Date: 20100402
  Receipt Date: 20100324
  Transmission Date: 20101027
  Serious: Yes (Hospitalization)
  Sender: FDA-Public Use
  Company Number: US-PFIZER INC-2010038027

PATIENT
  Sex: Female
  Weight: 48.073 kg

DRUGS (5)
  1. LIPITOR [Suspect]
     Indication: BLOOD CHOLESTEROL INCREASED
     Dosage: UNK
     Route: 048
     Dates: start: 20040101, end: 20100101
  2. PLAVIX [Suspect]
     Dosage: 75 MG, ALTERNATE DAY
     Route: 048
     Dates: start: 20040101
  3. ACETYLSALICYLIC ACID [Suspect]
     Dosage: 81 MG, 1X/DAY
     Route: 048
  4. LOVASTATIN [Suspect]
     Dosage: UNK
     Route: 048
  5. ALBUTEROL [Concomitant]
     Indication: ASTHMA
     Dosage: UNK

REACTIONS (4)
  - ANXIETY [None]
  - FEELING ABNORMAL [None]
  - MALAISE [None]
  - TRANSIENT ISCHAEMIC ATTACK [None]
